FAERS Safety Report 5156210-1 (Version None)
Quarter: 2006Q4

REPORT INFORMATION
  Report Type: 
  Country: None (occurrence: None)
  Receive Date: 20061114
  Receipt Date: 20061026
  Transmission Date: 20070319
  Serious: Yes (Death)
  Sender: FDA-Public Use
  Company Number: DSA_81740_2006

PATIENT
  Age: 58 Year
  Sex: Female
  Weight: 58.9676 kg

DRUGS (8)
  1. XYREM [Suspect]
     Indication: FIBROMYALGIA
     Dosage: DF TWICE NIGHTLY PO
     Route: 048
     Dates: start: 20051027, end: 20050101
  2. XYREM [Suspect]
     Indication: INSOMNIA
     Dosage: DF TWICE NIGHTLY PO
     Route: 048
     Dates: start: 20051027, end: 20050101
  3. TRAZODONE HCL [Suspect]
     Dosage: DF PO
     Route: 048
  4. PROZAC [Suspect]
     Indication: DEPRESSION
     Dosage: VAR QDAY PO
     Route: 048
  5. LIDOCAINE [Suspect]
     Indication: PAIN
     Dosage: DF UNK TP
     Route: 061
  6. PSEUDOEPHEDRINE HCL [Suspect]
     Dosage: DF
  7. MEPROBAMATE [Suspect]
     Indication: INSOMNIA
     Dosage: VAR QHS PO
     Route: 048
  8. KLONOPIN [Concomitant]

REACTIONS (3)
  - ACCIDENTAL OVERDOSE [None]
  - DRUG LEVEL ABOVE THERAPEUTIC [None]
  - MULTIPLE DRUG OVERDOSE ACCIDENTAL [None]
